FAERS Safety Report 5139354-X (Version None)
Quarter: 2006Q4

REPORT INFORMATION
  Report Type: 
  Country: None (occurrence: None)
  Receive Date: 20061024
  Receipt Date: 20061016
  Transmission Date: 20070319
  Serious: Yes (Hospitalization)
  Sender: FDA-Public Use
  Company Number: 2006AL003173

PATIENT
  Age: 79 Year
  Sex: Female
  Weight: 90.7194 kg

DRUGS (5)
  1. DIGOXIN [Suspect]
     Indication: HEART RATE IRREGULAR
     Dosage: .125 MG; QD; PO
     Route: 048
  2. SPIRONOLACTONE [Suspect]
     Indication: ATRIAL FIBRILLATION
     Dosage: 25 MG; QD; PO
     Route: 048
  3. SYNTHROID [Concomitant]
  4. CARDIZEM [Concomitant]
  5. FUROSEMIDE [Concomitant]

REACTIONS (3)
  - GAIT DISTURBANCE [None]
  - PARAESTHESIA [None]
  - TREMOR [None]
